FAERS Safety Report 7933436-2 (Version None)
Quarter: 2011Q4

REPORT INFORMATION
  Report Type: 
  Country: None (occurrence: None)
  Receive Date: 20111122
  Receipt Date: 20111110
  Transmission Date: 20120403
  Serious: Yes (Congenital Anomaly, Other)
  Sender: FDA-Public Use
  Company Number: US-PFIZER INC-2011282002

PATIENT

DRUGS (1)
  1. ZOLOFT [Suspect]
     Route: 064

REACTIONS (2)
  - FALLOT'S TETRALOGY [None]
  - MATERNAL EXPOSURE TIMING UNSPECIFIED [None]
